FAERS Safety Report 12458078 (Version 3)
Quarter: 2016Q3

REPORT INFORMATION
  Report Type: Report from Study
  Country: US (occurrence: US)
  Receive Date: 20160612
  Receipt Date: 20160729
  Transmission Date: 20161109
  Serious: No
  Sender: FDA-Public Use
  Company Number: PHEH2016US013727

PATIENT
  Sex: Female

DRUGS (1)
  1. GILENYA [Suspect]
     Active Substance: FINGOLIMOD HYDROCHLORIDE
     Indication: MULTIPLE SCLEROSIS
     Dosage: 0.5 MG, QD
     Route: 048
     Dates: start: 20160229

REACTIONS (6)
  - Alopecia [Unknown]
  - Weight decreased [Unknown]
  - Nervousness [Unknown]
  - Stress [Unknown]
  - Memory impairment [Unknown]
  - Cerebral disorder [Unknown]
